FAERS Safety Report 26040503 (Version 1)
Quarter: 2025Q4

REPORT INFORMATION
  Report Type: Report from Study
  Country: ZA (occurrence: ZA)
  Receive Date: 20251113
  Receipt Date: 20251113
  Transmission Date: 20260117
  Serious: Yes (Death)
  Sender: ROCHE
  Company Number: ZA-ROCHE-10000183218

PATIENT
  Age: 57 Year
  Sex: Female
  Weight: 81 kg

DRUGS (3)
  1. RITUXIMAB [Suspect]
     Active Substance: RITUXIMAB
     Indication: Rheumatoid arthritis
     Dosage: MORE DOSAGE INFORMATION: EVERY 6 MONTHS
     Route: 042
  2. RITUXIMAB [Suspect]
     Active Substance: RITUXIMAB
     Indication: Interstitial lung disease
  3. RITUXIMAB [Suspect]
     Active Substance: RITUXIMAB
     Indication: Systemic lupus erythematosus

REACTIONS (6)
  - White blood cell count increased [Unknown]
  - Alanine aminotransferase increased [Unknown]
  - Aspartate aminotransferase increased [Unknown]
  - C-reactive protein increased [Unknown]
  - Off label use [Unknown]
  - Death [Fatal]
